FAERS Safety Report 15608338 (Version 1)
Quarter: 2018Q4

REPORT INFORMATION
  Report Type: Spontaneous
  Country: US (occurrence: US)
  Receive Date: 20181107
  Receipt Date: 20181107
  Transmission Date: 20190205
  Serious: No
  Sender: FDA-Public Use
  Company Number: None

PATIENT
  Age: 26 Year
  Sex: Male
  Weight: 98.43 kg

DRUGS (1)
  1. BUPRENORPHINE. [Suspect]
     Active Substance: BUPRENORPHINE
     Route: 060
     Dates: start: 20180808, end: 20180813

REACTIONS (3)
  - Vomiting [None]
  - Hyperhidrosis [None]
  - Angioedema [None]

NARRATIVE: CASE EVENT DATE: 20180813
